FAERS Safety Report 8116272-6 (Version None)
Quarter: 2012Q1

REPORT INFORMATION
  Report Type: 
  Country: None (occurrence: None)
  Receive Date: 20120206
  Receipt Date: 20120126
  Transmission Date: 20120608
  Serious: Yes (Other)
  Sender: FDA-Public Use
  Company Number: PH-JNJFOC-20120103491

PATIENT
  Age: 31 Year
  Sex: Female

DRUGS (4)
  1. REMICADE [Suspect]
     Dosage: SECOND LOADING DOSE
     Route: 042
     Dates: start: 20111222
  2. REMICADE [Suspect]
     Route: 042
     Dates: start: 20120119, end: 20120119
  3. DIPHENHYDRAMINE HCL [Concomitant]
     Indication: PREMEDICATION
     Route: 042
     Dates: start: 20120119
  4. REMICADE [Suspect]
     Indication: PSORIASIS
     Dosage: FIRST LOADING DOSE
     Route: 042
     Dates: start: 20111208

REACTIONS (9)
  - HYPERSENSITIVITY [None]
  - URTICARIA [None]
  - FACE OEDEMA [None]
  - DRUG TOLERANCE [None]
  - INFUSION RELATED REACTION [None]
  - CHEST DISCOMFORT [None]
  - PRURITUS [None]
  - DYSPNOEA [None]
  - FLUSHING [None]
